FAERS Safety Report 9011545 (Version 2)
Quarter: 2013Q1

REPORT INFORMATION
  Report Type: Spontaneous
  Country: US (occurrence: US)
  Receive Date: 20130108
  Receipt Date: 20130205
  Transmission Date: 20140127
  Serious: Yes (Other)
  Sender: FDA-Public Use
  Company Number: US-INCYTE CORPORATION-2013IN000018

PATIENT
  Age: 52 None
  Sex: Female

DRUGS (7)
  1. JAKAFI [Suspect]
     Indication: MYELOFIBROSIS
     Dosage: 20 MG, BID
     Route: 048
     Dates: start: 20120120
  2. JAKAFI [Suspect]
     Dosage: 15 MG FREQUENCY NOT SPECIFIED
  3. JAKAFI [Suspect]
     Dosage: 10 MG FREQUENCY NOT SPECIFIED
  4. JAKAFI [Suspect]
     Dosage: 20 MG FREQUENCY NOT SPECIFIED
  5. JAKAFI [Suspect]
     Dosage: 25 MG, BID
  6. IRON [Suspect]
     Indication: ANAEMIA
     Dosage: NOT SPECIFIED
     Dates: start: 20120127
  7. LYRICA [Concomitant]

REACTIONS (20)
  - Iron overload [Unknown]
  - Gastrointestinal haemorrhage [Unknown]
  - Soft tissue disorder [Unknown]
  - Splenomegaly [Unknown]
  - Vitamin B1 decreased [Unknown]
  - Blood folate increased [Unknown]
  - Vitamin D deficiency [Unknown]
  - Anaemia [Unknown]
  - Weight increased [Unknown]
  - Night sweats [Unknown]
  - Local swelling [Unknown]
  - Joint swelling [Unknown]
  - Arthralgia [Unknown]
  - Dyspepsia [Unknown]
  - Haemorrhoidal haemorrhage [Unknown]
  - Diarrhoea [Unknown]
  - Nausea [Unknown]
  - Asthenia [Unknown]
  - Pruritus [Unknown]
  - Anxiety [Unknown]
